FAERS Safety Report 7579224-0 (Version None)
Quarter: 2011Q2

REPORT INFORMATION
  Report Type: 
  Country: None (occurrence: None)
  Receive Date: 20110628
  Receipt Date: 20110616
  Transmission Date: 20111010
  Serious: Yes (Hospitalization)
  Sender: FDA-Public Use
  Company Number: US-ELI_LILLY_AND_COMPANY-US201105006799

PATIENT
  Sex: Female
  Weight: 112.2 kg

DRUGS (9)
  1. ALPRAZOLAM [Concomitant]
  2. CYMBALTA [Suspect]
     Dosage: 120 MG, QD
     Route: 048
     Dates: end: 20110201
  3. PROVERA [Concomitant]
  4. CYMBALTA [Suspect]
     Indication: DEPRESSION
     Dosage: 90 MG, QD
     Route: 048
     Dates: start: 20100615
  5. CYMBALTA [Suspect]
     Dosage: 60 MG, QD
     Route: 048
     Dates: start: 20110202
  6. PROMETHAZINE HCL AND CODEINE [Concomitant]
  7. VICODIN [Concomitant]
  8. QVAR 40 [Concomitant]
  9. ESTRADIOL [Concomitant]

REACTIONS (2)
  - SUICIDAL IDEATION [None]
  - ABNORMAL BEHAVIOUR [None]
